FAERS Safety Report 16695937 (Version 1)
Quarter: 2019Q3

REPORT INFORMATION
  Report Type: Spontaneous
  Country: BE (occurrence: BE)
  Receive Date: 20190813
  Receipt Date: 20190813
  Transmission Date: 20191004
  Serious: Yes (Other)
  Sender: FDA-Public Use
  Company Number: BE-APOTEX-2019AP019747

PATIENT
  Age: 33 Year
  Sex: Male

DRUGS (42)
  1. AZITHROMYCIN ANHYDROUS. [Suspect]
     Active Substance: AZITHROMYCIN ANHYDROUS
     Indication: MYCOBACTERIUM ABSCESSUS INFECTION
     Dosage: UNK
     Route: 048
  2. AZITHROMYCIN ANHYDROUS. [Suspect]
     Active Substance: AZITHROMYCIN ANHYDROUS
     Indication: HEPATIC CIRRHOSIS
  3. MEROPENEM. [Suspect]
     Active Substance: MEROPENEM
     Indication: MYCOBACTERIUM ABSCESSUS INFECTION
     Dosage: UNK
     Route: 042
  4. MEROPENEM. [Suspect]
     Active Substance: MEROPENEM
     Indication: RESPIRATORY FAILURE
  5. LINEZOLID. [Suspect]
     Active Substance: LINEZOLID
     Indication: RESPIRATORY FAILURE
  6. AMIKACIN. [Suspect]
     Active Substance: AMIKACIN
     Indication: HEPATIC CIRRHOSIS
  7. LINEZOLID. [Suspect]
     Active Substance: LINEZOLID
     Indication: HEPATIC CIRRHOSIS
  8. CEFOXITIN [Suspect]
     Active Substance: CEFOXITIN SODIUM
     Indication: HEPATIC CIRRHOSIS
  9. MOXIFLOXACIN. [Suspect]
     Active Substance: MOXIFLOXACIN
     Indication: BRONCHIECTASIS
  10. AZITHROMYCIN ANHYDROUS. [Suspect]
     Active Substance: AZITHROMYCIN ANHYDROUS
     Indication: RESPIRATORY FAILURE
  11. MEROPENEM. [Suspect]
     Active Substance: MEROPENEM
     Indication: HEPATIC CIRRHOSIS
  12. MOXIFLOXACIN. [Suspect]
     Active Substance: MOXIFLOXACIN
     Indication: HEPATIC CIRRHOSIS
  13. MOXIFLOXACIN. [Suspect]
     Active Substance: MOXIFLOXACIN
     Indication: CYSTIC FIBROSIS
  14. MEROPENEM. [Suspect]
     Active Substance: MEROPENEM
     Indication: CYSTIC FIBROSIS
  15. AMIKACIN. [Suspect]
     Active Substance: AMIKACIN
     Indication: MYCOBACTERIUM ABSCESSUS INFECTION
     Dosage: UNK
     Route: 042
  16. AMIKACIN. [Suspect]
     Active Substance: AMIKACIN
     Indication: LUNG INFECTION
  17. LINEZOLID. [Suspect]
     Active Substance: LINEZOLID
     Indication: RESPIRATORY FAILURE
  18. LINEZOLID. [Suspect]
     Active Substance: LINEZOLID
     Indication: BRONCHIECTASIS
  19. CEFOXITIN [Suspect]
     Active Substance: CEFOXITIN SODIUM
     Indication: MYCOBACTERIUM ABSCESSUS INFECTION
     Dosage: UNK
     Route: 042
  20. CEFOXITIN [Suspect]
     Active Substance: CEFOXITIN SODIUM
     Indication: BRONCHIECTASIS
  21. CEFOXITIN [Suspect]
     Active Substance: CEFOXITIN SODIUM
     Indication: RESPIRATORY FAILURE
  22. CEFOXITIN [Suspect]
     Active Substance: CEFOXITIN SODIUM
     Indication: LUNG INFECTION
  23. MOXIFLOXACIN. [Suspect]
     Active Substance: MOXIFLOXACIN
     Indication: MYCOBACTERIUM ABSCESSUS INFECTION
     Dosage: UNK
     Route: 048
  24. MOXIFLOXACIN. [Suspect]
     Active Substance: MOXIFLOXACIN
     Indication: RESPIRATORY FAILURE
  25. AZITHROMYCIN ANHYDROUS. [Suspect]
     Active Substance: AZITHROMYCIN ANHYDROUS
     Indication: CYSTIC FIBROSIS
  26. AZITHROMYCIN ANHYDROUS. [Suspect]
     Active Substance: AZITHROMYCIN ANHYDROUS
     Indication: LUNG INFECTION
  27. MEROPENEM. [Suspect]
     Active Substance: MEROPENEM
     Indication: LUNG INFECTION
  28. AZITHROMYCIN ANHYDROUS. [Suspect]
     Active Substance: AZITHROMYCIN ANHYDROUS
     Indication: BRONCHIECTASIS
  29. MEROPENEM. [Suspect]
     Active Substance: MEROPENEM
     Indication: RESPIRATORY FAILURE
  30. AMIKACIN. [Suspect]
     Active Substance: AMIKACIN
     Indication: CYSTIC FIBROSIS
  31. LINEZOLID. [Suspect]
     Active Substance: LINEZOLID
     Indication: LUNG INFECTION
  32. CEFOXITIN [Suspect]
     Active Substance: CEFOXITIN SODIUM
     Indication: CYSTIC FIBROSIS
  33. MOXIFLOXACIN. [Suspect]
     Active Substance: MOXIFLOXACIN
     Indication: LUNG INFECTION
  34. AZITHROMYCIN ANHYDROUS. [Suspect]
     Active Substance: AZITHROMYCIN ANHYDROUS
     Indication: RESPIRATORY FAILURE
  35. AMIKACIN. [Suspect]
     Active Substance: AMIKACIN
     Indication: RESPIRATORY FAILURE
  36. AMIKACIN. [Suspect]
     Active Substance: AMIKACIN
     Indication: BRONCHIECTASIS
  37. MOXIFLOXACIN. [Suspect]
     Active Substance: MOXIFLOXACIN
     Indication: RESPIRATORY FAILURE
  38. MEROPENEM. [Suspect]
     Active Substance: MEROPENEM
     Indication: BRONCHIECTASIS
  39. AMIKACIN. [Suspect]
     Active Substance: AMIKACIN
     Indication: RESPIRATORY FAILURE
  40. LINEZOLID. [Suspect]
     Active Substance: LINEZOLID
     Indication: MYCOBACTERIUM ABSCESSUS INFECTION
     Dosage: UNK
     Route: 048
  41. LINEZOLID. [Suspect]
     Active Substance: LINEZOLID
     Indication: CYSTIC FIBROSIS
  42. CEFOXITIN [Suspect]
     Active Substance: CEFOXITIN SODIUM
     Indication: RESPIRATORY FAILURE

REACTIONS (3)
  - Deafness [Unknown]
  - Pyrexia [Unknown]
  - Toxicity to various agents [Unknown]
